FAERS Safety Report 25841064 (Version 4)
Quarter: 2025Q4

REPORT INFORMATION
  Report Type: Spontaneous
  Country: US (occurrence: US)
  Receive Date: 20250924
  Receipt Date: 20251024
  Transmission Date: 20260118
  Serious: Yes (Hospitalization, Other)
  Sender: KARYOPHARM THERAPEUTICS
  Company Number: US-KARYOPHARM-2025KPT100355

PATIENT

DRUGS (7)
  1. SELINEXOR [Suspect]
     Active Substance: SELINEXOR
     Indication: Intracranial mass
     Dosage: 100 MG WEEKLY
     Route: 048
     Dates: start: 20241107, end: 20250609
  2. SELINEXOR [Suspect]
     Active Substance: SELINEXOR
     Dosage: 100 MG WEEKLY
     Route: 048
     Dates: start: 20250918
  3. CYPROHEPTADINE [Concomitant]
     Active Substance: CYPROHEPTADINE
  4. EMEND [Concomitant]
     Active Substance: APREPITANT
  5. DRONABINOL [Concomitant]
     Active Substance: DRONABINOL
  6. ALBUTEROL SULFATE [Concomitant]
     Active Substance: ALBUTEROL SULFATE
  7. PREDNISONE [Concomitant]
     Active Substance: PREDNISONE

REACTIONS (8)
  - CSF shunt operation [Unknown]
  - Diabetic ketoacidosis [Unknown]
  - Diabetes mellitus [Not Recovered/Not Resolved]
  - Thirst [Unknown]
  - Oxygen saturation decreased [Unknown]
  - Dysarthria [Unknown]
  - Asthenia [Not Recovered/Not Resolved]
  - Fatigue [Unknown]

NARRATIVE: CASE EVENT DATE: 20250529
